FAERS Safety Report 4956798-7 (Version None)
Quarter: 2006Q1

REPORT INFORMATION
  Report Type: 
  Country: None (occurrence: None)
  Receive Date: 20060323
  Receipt Date: 20060313
  Transmission Date: 20060701
  Serious: Yes (Other)
  Sender: FDA-Public Use
  Company Number: CERZ-11168

PATIENT
  Age: 59 Year
  Sex: Male
  Weight: 77 kg

DRUGS (1)
  1. CEREZYME [Suspect]
     Indication: GAUCHER'S DISEASE
     Dosage: 2000 UNITS IV
     Route: 042
     Dates: start: 20050404, end: 20060306

REACTIONS (5)
  - DERMATITIS BULLOUS [None]
  - HEADACHE [None]
  - INFUSION RELATED REACTION [None]
  - PRURITUS GENERALISED [None]
  - TINNITUS [None]
